FAERS Safety Report 5804097-3 (Version None)
Quarter: 2008Q3

REPORT INFORMATION
  Report Type: 
  Country: None (occurrence: None)
  Receive Date: 20080707
  Receipt Date: 20080625
  Transmission Date: 20090109
  Serious: Yes (Hospitalization)
  Sender: FDA-Public Use
  Company Number: 2008SP012810

PATIENT
  Age: 49 Year
  Sex: Male
  Weight: 92 kg

DRUGS (1)
  1. CELESTAMINE TAB [Suspect]
     Indication: PSORIASIS
     Dosage: 6 DF; PO
     Route: 048

REACTIONS (6)
  - ABDOMINAL DISCOMFORT [None]
  - ABDOMINAL DISTENSION [None]
  - BLOOD CHOLESTEROL INCREASED [None]
  - SKIN STRIAE [None]
  - UMBILICAL HERNIA, OBSTRUCTIVE [None]
  - WHITE BLOOD CELL COUNT INCREASED [None]
